FAERS Safety Report 14822304 (Version 2)
Quarter: 2018Q3

REPORT INFORMATION
  Report Type: Report from Study
  Country: US (occurrence: US)
  Receive Date: 20180427
  Receipt Date: 20180808
  Transmission Date: 20181010
  Serious: No
  Sender: FDA-Public Use
  Company Number: US-ALEXION PHARMACEUTICALS INC.-A201804890

PATIENT
  Sex: Male
  Weight: 101.13 kg

DRUGS (2)
  1. SOLIRIS [Suspect]
     Active Substance: ECULIZUMAB
     Indication: MYASTHENIA GRAVIS
     Dosage: 900 MG, WEEKLY
     Route: 042
     Dates: start: 20180319, end: 20180410
  2. SOLIRIS [Suspect]
     Active Substance: ECULIZUMAB
     Dosage: 1200 MG, BIWEEKLY
     Route: 042
     Dates: start: 20180417

REACTIONS (2)
  - Fatigue [Unknown]
  - Headache [Unknown]
